FAERS Safety Report 7075307-2 (Version None)
Quarter: 2010Q4

REPORT INFORMATION
  Report Type: 
  Country: None (occurrence: None)
  Receive Date: 20101030
  Receipt Date: 20100610
  Transmission Date: 20110411
  Serious: No
  Sender: FDA-Public Use
  Company Number: US-WYE-H15752910

PATIENT
  Age: 45 Year
  Sex: Male

DRUGS (1)
  1. ADVIL PM [Suspect]
     Indication: INSOMNIA
     Dosage: 2 CAPLETS AS NEEDED
     Route: 048
     Dates: start: 20100301

REACTIONS (1)
  - URTICARIA [None]
